FAERS Safety Report 13315177 (Version 3)
Quarter: 2017Q2

REPORT INFORMATION
  Report Type: Report from Study
  Country: None (occurrence: CA)
  Receive Date: 20170309
  Receipt Date: 20170421
  Transmission Date: 20170830
  Serious: Yes (Hospitalization, Other)
  Sender: FDA-Public Use
  Company Number: CA-ABBVIE-17P-028-1899478-00

PATIENT
  Age: 46 Year
  Sex: Female

DRUGS (5)
  1. HUMIRA [Suspect]
     Active Substance: ADALIMUMAB
     Route: 058
     Dates: start: 201703
  2. HUMIRA [Suspect]
     Active Substance: ADALIMUMAB
     Route: 058
     Dates: start: 201703, end: 201703
  3. HUMIRA [Suspect]
     Active Substance: ADALIMUMAB
     Dosage: SECOND INDUCTION DOSE
     Route: 058
     Dates: start: 20170302, end: 20170302
  4. HUMIRA [Suspect]
     Active Substance: ADALIMUMAB
     Indication: CROHN^S DISEASE
     Dosage: FIRST INDUCTION DOSE
     Route: 058
     Dates: start: 20170216, end: 20170216
  5. CORTISONE [Suspect]
     Active Substance: CORTISONE\HYDROCORTISONE
     Indication: CHORIORETINOPATHY
     Route: 065
     Dates: start: 201701

REACTIONS (15)
  - Vision blurred [Not Recovered/Not Resolved]
  - Mobility decreased [Not Recovered/Not Resolved]
  - Drug hypersensitivity [Not Recovered/Not Resolved]
  - Tremor [Not Recovered/Not Resolved]
  - Swelling face [Not Recovered/Not Resolved]
  - Frequent bowel movements [Recovering/Resolving]
  - Visual impairment [Not Recovered/Not Resolved]
  - Gastrointestinal motility disorder [Recovering/Resolving]
  - Colitis [Not Recovered/Not Resolved]
  - Ear congestion [Not Recovered/Not Resolved]
  - Diarrhoea [Not Recovered/Not Resolved]
  - Ocular discomfort [Not Recovered/Not Resolved]
  - Blindness unilateral [Not Recovered/Not Resolved]
  - Chorioretinopathy [Recovering/Resolving]
  - Abdominal pain [Not Recovered/Not Resolved]

NARRATIVE: CASE EVENT DATE: 2017
